FAERS Safety Report 9450901 (Version 1)
Quarter: 2013Q3

REPORT INFORMATION
  Report Type: Report from Study
  Country: DE (occurrence: DE)
  Receive Date: 20130809
  Receipt Date: 20130809
  Transmission Date: 20140515
  Serious: Yes (Hospitalization)
  Sender: FDA-Public Use
  Company Number: DE-BRISTOL-MYERS SQUIBB COMPANY-15524317

PATIENT
  Age: 69 Year
  Sex: Female

DRUGS (2)
  1. ABATACEPT [Suspect]
     Indication: RHEUMATOID ARTHRITIS
     Dosage: T1 12MAY09,T2 INTRPTD-JAN10,MAY10-JUN10.
     Dates: start: 20090122
  2. METHOTREXATE [Suspect]
     Indication: RHEUMATOID ARTHRITIS
     Dosage: T2 18AUG09, T3 15FEB10, T4 26JUL10 (15MG); ALSO TAKENJUN2010
     Dates: start: 200901

REACTIONS (5)
  - Joint abscess [Recovered/Resolved]
  - Wound [Unknown]
  - Sciatica [Unknown]
  - Herpes zoster [Unknown]
  - Neuralgia [Unknown]
